FAERS Safety Report 4441269-7 (Version None)
Quarter: 2004Q3

REPORT INFORMATION
  Report Type: 
  Country: None (occurrence: None)
  Receive Date: 20040728
  Receipt Date: 20040312
  Transmission Date: 20050211
  Serious: No
  Sender: FDA-Public Use
  Company Number: USA040361906

PATIENT
  Age: 33 Year
  Sex: Male

DRUGS (2)
  1. STRATTERA [Suspect]
     Dosage: 40 MG DAY
  2. PREVACID [Concomitant]

REACTIONS (3)
  - BLOOD GLUCOSE DECREASED [None]
  - ERECTILE DYSFUNCTION [None]
  - FEELING DRUNK [None]
